FAERS Safety Report 5055714-X (Version None)
Quarter: 2006Q3

REPORT INFORMATION
  Report Type: 
  Country: None (occurrence: None)
  Receive Date: 20060719
  Receipt Date: 20060127
  Transmission Date: 20061208
  Serious: No
  Sender: FDA-Public Use
  Company Number: US-AMGEN-US166655

PATIENT
  Age: 81 Year
  Sex: Male

DRUGS (1)
  1. EPOGEN [Suspect]
     Indication: MYELODYSPLASTIC SYNDROME
     Dates: start: 20050531

REACTIONS (1)
  - THERAPEUTIC RESPONSE DECREASED [None]
